FAERS Safety Report 6783961-5 (Version None)
Quarter: 2010Q2

REPORT INFORMATION
  Report Type: 
  Country: None (occurrence: None)
  Receive Date: 20100622
  Receipt Date: 20090722
  Transmission Date: 20101027
  Serious: Yes (Hospitalization)
  Sender: FDA-Public Use
  Company Number: US-BRISTOL-MYERS SQUIBB COMPANY-14715478

PATIENT
  Age: 66 Year
  Sex: Female

DRUGS (11)
  1. CARBIDOPA + LEVODOPA [Suspect]
     Route: 048
  2. ROPINIROLE [Suspect]
     Indication: PARKINSON'S DISEASE
     Dosage: FORM-TAB.4MG/D ALSO GIVEN.
     Route: 048
     Dates: start: 20080923, end: 20081008
  3. DOCUSATE SODIUM [Concomitant]
  4. ENTACAPONE [Concomitant]
  5. IBUPROFEN [Concomitant]
  6. LEVOTHYROXINE SODIUM [Concomitant]
  7. PRAMIPEXOLE DIHYDROCHLORIDE [Concomitant]
  8. RANITIDINE [Concomitant]
  9. RASAGILINE MESILATE [Concomitant]
  10. SOLIFENACIN SUCCINATE [Concomitant]
  11. VITAMINS [Concomitant]

REACTIONS (2)
  - DYSPNOEA [None]
  - HAEMOGLOBIN DECREASED [None]
